FAERS Safety Report 8422405-4 (Version None)
Quarter: 2012Q2

REPORT INFORMATION
  Report Type: 
  Country: None (occurrence: None)
  Receive Date: 20120608
  Receipt Date: 20120529
  Transmission Date: 20120825
  Serious: Yes (Hospitalization)
  Sender: FDA-Public Use
  Company Number: BE-ABBOTT-12P-013-0939994-03

PATIENT
  Sex: Female

DRUGS (12)
  1. HUMIRA [Suspect]
     Dosage: ONCE
  2. ZOCOR [Concomitant]
     Indication: HYPERLIPIDAEMIA
     Dates: start: 20080101
  3. DEANXIT [Concomitant]
     Indication: DEPRESSION
     Dates: start: 20080101
  4. ACTONEL [Concomitant]
     Indication: OSTEOPOROSIS
     Dates: start: 20080101, end: 20090301
  5. HUMIRA [Suspect]
     Dates: end: 20090901
  6. ASPIRIN [Concomitant]
     Indication: PROPHYLAXIS
     Dates: start: 20060801
  7. CORUMO [Concomitant]
     Indication: CORONARY ARTERY BYPASS
     Dates: start: 20060801
  8. HUMIRA [Suspect]
     Indication: CROHN'S DISEASE
     Dosage: ONCE
     Route: 058
     Dates: start: 20090115, end: 20090115
  9. PERINDOPRIL ERBUMINE [Concomitant]
     Indication: PROPHYLAXIS
     Dates: start: 20070109
  10. REMICADE [Concomitant]
     Indication: PRODUCT USED FOR UNKNOWN INDICATION
  11. IMURAN [Concomitant]
     Indication: CROHN'S DISEASE
     Dates: start: 20090422
  12. IMMUNOSUPPRESSANTS [Concomitant]
     Indication: PRODUCT USED FOR UNKNOWN INDICATION

REACTIONS (1)
  - CROHN'S DISEASE [None]
